FAERS Safety Report 7228676 (Version 1)
Quarter: 2020Q3

REPORT INFORMATION
  Report Type: Report from Study
  Country: JP (occurrence: JP)
  Receive Date: 20091223
  Receipt Date: 20091223
  Transmission Date: 20201104
  Serious: Yes (Hospitalization)
  Sender: FDA-Public Use
  Company Number: JP-TEVA-215755ISR

PATIENT
  Age: 67 Year
  Sex: Female
  Weight: 42 kg

DRUGS (14)
  1. CISPLATIN. [Suspect]
     Active Substance: CISPLATIN
     Indication: GASTRIC CANCER
     Dosage: 80 MG/MM^2
     Route: 042
     Dates: start: 20091008
  2. GRANISETRON [Concomitant]
     Active Substance: GRANISETRON
     Dates: start: 20091008, end: 20091012
  3. OMEPRAZOLE. [Concomitant]
     Active Substance: OMEPRAZOLE
  4. METOCLOPRAMIDE. [Concomitant]
     Active Substance: METOCLOPRAMIDE
     Dates: start: 20091009
  5. FUROSEMIDE [Concomitant]
     Dates: start: 20091008, end: 20091008
  6. CEDIRANIB. [Suspect]
     Active Substance: CEDIRANIB
     Indication: GASTRIC CANCER
     Route: 048
     Dates: start: 20091009, end: 20091103
  7. CAPECITABINE. [Suspect]
     Active Substance: CAPECITABINE
     Route: 048
     Dates: start: 20091029, end: 20091103
  8. TEPRENONE [Concomitant]
     Dates: start: 20091009
  9. CAPECITABINE. [Suspect]
     Active Substance: CAPECITABINE
     Indication: GASTRIC CANCER
     Route: 048
     Dates: start: 20091008, end: 20091103
  10. TOCOPHERYL NICOTINATE [Concomitant]
  11. METOCLOPRAMIDE. [Concomitant]
     Active Substance: METOCLOPRAMIDE
     Dates: start: 20091009
  12. CAPECITABINE. [Suspect]
     Active Substance: CAPECITABINE
     Route: 048
     Dates: start: 20091015, end: 20091021
  13. SODIUM ALGINATE [Concomitant]
     Dates: start: 20091009
  14. MANNITOL. [Concomitant]
     Active Substance: MANNITOL
     Dates: start: 20091008, end: 20091012

REACTIONS (1)
  - Pulmonary embolism [Recovering/Resolving]

NARRATIVE: CASE EVENT DATE: 20091010
